FAERS Safety Report 23202318 (Version 1)
Quarter: 2023Q4

REPORT INFORMATION
  Report Type: Spontaneous
  Country: HR (occurrence: HR)
  Receive Date: 20231120
  Receipt Date: 20231120
  Transmission Date: 20240109
  Serious: Yes (Other)
  Sender: FDA-Public Use
  Company Number: HR-IMMUNOCORE, LTD-2023-IMC-001987

PATIENT

DRUGS (2)
  1. TEBENTAFUSP [Suspect]
     Active Substance: TEBENTAFUSP
     Indication: Product used for unknown indication
     Dosage: DOSE 1
     Dates: start: 202305
  2. TEBENTAFUSP [Suspect]
     Active Substance: TEBENTAFUSP
     Dosage: UNK, SINGLE, DOSE 19

REACTIONS (2)
  - Epilepsy [Unknown]
  - Blood lactate dehydrogenase increased [Unknown]
